FAERS Safety Report 10267412 (Version 1)
Quarter: 2014Q2

REPORT INFORMATION
  Report Type: Spontaneous
  Country: DE (occurrence: DE)
  Receive Date: 20140630
  Receipt Date: 20140630
  Transmission Date: 20141212
  Serious: Yes (Other)
  Sender: FDA-Public Use
  Company Number: DE-MYLANLABS-2014S1014347

PATIENT
  Age: 59 Year
  Sex: Male
  Weight: 93 kg

DRUGS (1)
  1. METOPROLOL [Suspect]
     Indication: HYPERTENSION
     Route: 048

REACTIONS (1)
  - Blood pressure increased [Recovered/Resolved]
